FAERS Safety Report 18910457 (Version 1)
Quarter: 2021Q1

REPORT INFORMATION
  Report Type: Spontaneous
  Country: DE (occurrence: DE)
  Receive Date: 20210218
  Receipt Date: 20210218
  Transmission Date: 20210420
  Serious: Yes (Hospitalization, Other)
  Sender: FDA-Public Use
  Company Number: DE-TEVA-2021-DE-1879590

PATIENT
  Age: 54 Year
  Sex: Male

DRUGS (1)
  1. COPAXONE [Suspect]
     Active Substance: GLATIRAMER ACETATE
     Route: 065
     Dates: start: 202012

REACTIONS (9)
  - Anaphylactic shock [Unknown]
  - Swelling [Unknown]
  - Chills [Unknown]
  - Blister [Unknown]
  - Injection site swelling [Unknown]
  - Feeling abnormal [Unknown]
  - Arrhythmia [Unknown]
  - Pyrexia [Unknown]
  - Product quality issue [Unknown]
